FAERS Safety Report 5125257-3 (Version None)
Quarter: 2006Q4

REPORT INFORMATION
  Report Type: 
  Country: None (occurrence: None)
  Receive Date: 20061011
  Receipt Date: 20060630
  Transmission Date: 20070319
  Serious: Yes (Hospitalization)
  Sender: FDA-Public Use
  Company Number: FR-BOEHRINGER INGELHEIM PHARMACEUTICALS, INC.-2006-BP-07667YA

PATIENT
  Age: 76 Year
  Sex: Male
  Weight: 96 kg

DRUGS (7)
  1. TAMSULOSIN HCL [Suspect]
     Route: 048
  2. MONO-TILDIEM [Suspect]
     Route: 048
     Dates: start: 20020601
  3. UN-ALFA [Suspect]
     Route: 048
  4. VERCYTE [Suspect]
     Indication: POLYCYTHAEMIA
     Route: 048
     Dates: end: 20060215
  5. ASPIRIN [Suspect]
     Route: 048
     Dates: start: 19961201
  6. PRAVASTATIN [Suspect]
     Route: 048
     Dates: start: 20000801
  7. NITRODERM [Concomitant]

REACTIONS (6)
  - ABDOMINAL STRANGULATED HERNIA [None]
  - CEREBROVASCULAR ACCIDENT [None]
  - DYSPEPSIA [None]
  - GASTRIC ULCER [None]
  - MONOPLEGIA [None]
  - PYLORIC STENOSIS [None]
